FAERS Safety Report 5277311-3 (Version None)
Quarter: 2007Q1

REPORT INFORMATION
  Report Type: 
  Country: None (occurrence: None)
  Receive Date: 20061213
  Receipt Date: 20040817
  Transmission Date: 20070707
  Serious: Yes (Hospitalization)
  Sender: FDA-Public Use
  Company Number: 2004UW17467

PATIENT
  Age: 18 Year
  Sex: Male

DRUGS (2)
  1. SEROQUEL [Suspect]
  2. DEPAKOTE [Suspect]

REACTIONS (1)
  - AGGRESSION [None]
